FAERS Safety Report 10897631 (Version 5)
Quarter: 2016Q1

REPORT INFORMATION
  Report Type: Spontaneous
  Country: BR (occurrence: BR)
  Receive Date: 20150309
  Receipt Date: 20160311
  Transmission Date: 20160525
  Serious: Yes (Other)
  Sender: FDA-Public Use
  Company Number: BR-PFIZER INC-2015080367

PATIENT
  Sex: Male

DRUGS (3)
  1. FRONTAL [Suspect]
     Active Substance: ALPRAZOLAM
     Dosage: 1 TABLET OF 2 MG, 3X/DAY
  2. FRONTAL [Suspect]
     Active Substance: ALPRAZOLAM
     Indication: ANXIETY
     Dosage: 2 MG, DAILY
     Dates: start: 2002
  3. FRONTAL [Suspect]
     Active Substance: ALPRAZOLAM
     Indication: DEPRESSION
     Dosage: 4 MG, DAILY

REACTIONS (11)
  - Abnormal behaviour [Unknown]
  - Feeling abnormal [Unknown]
  - Fear [Unknown]
  - Anxiety [Not Recovered/Not Resolved]
  - Erectile dysfunction [Unknown]
  - Hallucination [Unknown]
  - Disorientation [Unknown]
  - Muscular weakness [Unknown]
  - Thyroid disorder [Unknown]
  - Paranoia [Unknown]
  - Loss of libido [Unknown]

NARRATIVE: CASE EVENT DATE: 2006
